FAERS Safety Report 10131706 (Version 2)
Quarter: 2014Q2

REPORT INFORMATION
  Report Type: Report from Study
  Country: US (occurrence: US)
  Receive Date: 20140428
  Receipt Date: 20140429
  Transmission Date: 20141212
  Serious: Yes (Other)
  Sender: FDA-Public Use
  Company Number: US-PFIZER INC-2014112962

PATIENT
  Age: 66 Year
  Sex: Male

DRUGS (15)
  1. VORICONAZOLE [Suspect]
     Indication: FUNGAL INFECTION
  2. AMBISOME [Suspect]
     Indication: FUNGAL INFECTION
     Dosage: UNK
  3. ACETAMINOPHEN [Concomitant]
  4. DILAUDID [Concomitant]
  5. DOCUSATE/SENNA [Concomitant]
  6. ENOXAPARIN [Concomitant]
  7. LEVOTHYROXINE [Concomitant]
  8. OXYCODONE/APAP [Concomitant]
  9. ONDANSETRON [Concomitant]
  10. PROMETHAZINE [Concomitant]
  11. MAGNESIUM HYDROXIDE [Concomitant]
  12. DIPHENHYDRAMINE [Concomitant]
  13. BISACODYL [Concomitant]
  14. GABAPENTIN [Concomitant]
  15. METHYLPREDNISOLONE [Concomitant]
     Dosage: UNK
     Dates: start: 20120911

REACTIONS (7)
  - Delirium [Unknown]
  - Hallucination [Unknown]
  - Mental status changes [Unknown]
  - Liver function test abnormal [Unknown]
  - Vomiting [Unknown]
  - Nausea [Unknown]
  - Blood creatinine increased [Unknown]
